FAERS Safety Report 19641341 (Version 1)
Quarter: 2021Q3

REPORT INFORMATION
  Report Type: Spontaneous
  Country: US (occurrence: US)
  Receive Date: 20210730
  Receipt Date: 20210730
  Transmission Date: 20211014
  Serious: No
  Sender: FDA-Public Use
  Company Number: US-DENTSPLY PHARMACEUTICAL-2020SCDP000350

PATIENT

DRUGS (1)
  1. LIDOCAINE HCL [Suspect]
     Active Substance: LIDOCAINE HYDROCHLORIDE
     Indication: ANAESTHESIA
     Dosage: 15 MILLILITER IA LIDOCAINE 2%
     Route: 014

REACTIONS (6)
  - Hypertension [Unknown]
  - Tachycardia [Unknown]
  - Headache [Unknown]
  - Presyncope [Unknown]
  - Dizziness [Unknown]
  - Nausea [Unknown]
